FAERS Safety Report 8411755-3 (Version None)
Quarter: 2012Q2

REPORT INFORMATION
  Report Type: 
  Country: None (occurrence: None)
  Receive Date: 20120531
  Receipt Date: 20120531
  Transmission Date: 20120825
  Serious: Yes (Other)
  Sender: FDA-Public Use
  Company Number: None

PATIENT
  Sex: Male
  Weight: 74.8435 kg

DRUGS (1)
  1. COPAXONE [Suspect]
     Dosage: 1 INJECTION ONCE DAILY SQ
     Route: 058
     Dates: start: 20110801, end: 20120401

REACTIONS (4)
  - EYE DISORDER [None]
  - HYPERSENSITIVITY [None]
  - URTICARIA [None]
  - PHARYNGEAL DISORDER [None]
